FAERS Safety Report 12187736 (Version 2)
Quarter: 2016Q2

REPORT INFORMATION
  Report Type: Spontaneous
  Country: JP (occurrence: JP)
  Receive Date: 20160317
  Receipt Date: 20160408
  Transmission Date: 20160815
  Serious: Yes (Death)
  Sender: FDA-Public Use
  Company Number: JP-ASTRAZENECA-2016SE27660

PATIENT
  Age: 68 Year
  Sex: Male

DRUGS (2)
  1. BICALUTAMIDE. [Suspect]
     Active Substance: BICALUTAMIDE
     Indication: PROSTATE CANCER
     Dosage: 80 MG DAILY, NON-ASTRAZENECA GENERIC
     Route: 048
     Dates: start: 201412
  2. WARFARIN [Interacting]
     Active Substance: WARFARIN
     Indication: ANGINA PECTORIS
     Dosage: DOSE UNKNOWN
     Route: 065

REACTIONS (6)
  - Cardiomegaly [Fatal]
  - Drug interaction [Fatal]
  - Pneumonia mycoplasmal [Fatal]
  - Interstitial lung disease [Fatal]
  - Renal impairment [Fatal]
  - Cardiac failure [Fatal]
